FAERS Safety Report 8382723-5 (Version None)
Quarter: 2012Q2

REPORT INFORMATION
  Report Type: 
  Country: None (occurrence: None)
  Receive Date: 20120503
  Receipt Date: 20120418
  Transmission Date: 20120825
  Serious: Yes (Other)
  Sender: FDA-Public Use
  Company Number: 21334

PATIENT
  Sex: Female
  Weight: 72.1219 kg

DRUGS (5)
  1. SPIRIVA [Concomitant]
  2. OXYGEN NC 2L AT REST OR 4L W/ ACTIVITY [Concomitant]
  3. GLASSIA [Suspect]
     Indication: ALPHA-1 ANTI-TRYPSIN DEFICIENCY
     Dosage: 60MG/KG IV WEEKLY
     Route: 042
     Dates: start: 20111001
  4. ADVAIR DISKUS 100/50 [Concomitant]
  5. AIBUTEROL(PROVENTIL) INHALER PRN [Concomitant]

REACTIONS (6)
  - FATIGUE [None]
  - PAIN [None]
  - BLOOD PRESSURE INCREASED [None]
  - MYALGIA [None]
  - INFLUENZA LIKE ILLNESS [None]
  - HEADACHE [None]
